FAERS Safety Report 8787277 (Version 1)
Quarter: 2012Q4

REPORT INFORMATION
  Report Type: 
  Country: SD (occurrence: SD)
  Receive Date: 20120914
  Receipt Date: 20120914
  Transmission Date: 20130627
  Serious: Yes (Death, Other)
  Sender: FDA-Public Use
  Company Number: PHHY2005SD007571

PATIENT
  Sex: Female

DRUGS (1)
  1. GLIVEC [Suspect]
     Dosage: UNK
     Dates: start: 20050228

REACTIONS (3)
  - Anaemia [Fatal]
  - Jaundice [Unknown]
  - Hepatotoxicity [Unknown]
